FAERS Safety Report 11595487 (Version 1)
Quarter: 2015Q4

REPORT INFORMATION
  Report Type: Spontaneous
  Country: US (occurrence: US)
  Receive Date: 20151006
  Receipt Date: 20151006
  Transmission Date: 20160304
  Serious: Yes (Hospitalization)
  Sender: FDA-Public Use
  Company Number: US-DRREDDYS-USA/USA/15/0053037

PATIENT
  Age: 53 Year
  Sex: Male

DRUGS (1)
  1. MINOCYCLINE\MINOCYCLINE HYDROCHLORIDE [Suspect]
     Active Substance: MINOCYCLINE\MINOCYCLINE HYDROCHLORIDE
     Indication: ACNE
     Route: 065

REACTIONS (6)
  - Ocular icterus [Unknown]
  - Generalised oedema [Unknown]
  - Hepatitis alcoholic [Unknown]
  - Skin hyperpigmentation [Unknown]
  - Hepatic encephalopathy [Unknown]
  - Ascites [Unknown]
